FAERS Safety Report 13441970 (Version 2)
Quarter: 2017Q2

REPORT INFORMATION
  Report Type: Spontaneous
  Country: JP (occurrence: JP)
  Receive Date: 20170413
  Receipt Date: 20170510
  Transmission Date: 20170830
  Serious: Yes (Other)
  Sender: FDA-Public Use
  Company Number: PHJP2017JP012210

PATIENT
  Age: 80 Year
  Sex: Male

DRUGS (1)
  1. EXELON PATCH [Suspect]
     Active Substance: RIVASTIGMINE
     Indication: DEMENTIA ALZHEIMER^S TYPE
     Dosage: 1.9 MG, QD PATCH 2.5 (CM2)
     Route: 062

REACTIONS (1)
  - Akinesia [Recovered/Resolved]

NARRATIVE: CASE EVENT DATE: 201703
